FAERS Safety Report 21581912 (Version 2)
Quarter: 2022Q4

REPORT INFORMATION
  Report Type: Report from Study
  Country: KR (occurrence: None)
  Receive Date: 20221111
  Receipt Date: 20221125
  Transmission Date: 20230113
  Serious: Yes (Hospitalization)
  Sender: FDA-Public Use
  Company Number: KR-ROCHE-3214887

PATIENT
  Age: 60 Year
  Sex: Female
  Weight: 60 kg

DRUGS (20)
  1. PERTUZUMAB\TRASTUZUMAB [Suspect]
     Active Substance: PERTUZUMAB\TRASTUZUMAB
     Indication: HER2 positive breast cancer
     Dosage: DOSE: 1200 MG AND 600 MG. (AS PER PROTOCOL- 1200 MILLIGRAM (MG) PERTUZUMAB, 600 MG TRASTUZUMAB). DOS
     Route: 058
     Dates: start: 20220902
  2. DOCETAXEL [Suspect]
     Active Substance: DOCETAXEL
     Indication: HER2 positive breast cancer
     Dosage: ON 03/NOV/2022, RECEIVED MOAT RECENT DOSE OF STUDY DRUG PRIOR TO AE AND SAE.
     Route: 042
     Dates: start: 20220902
  3. CARBOPLATIN [Suspect]
     Active Substance: CARBOPLATIN
     Indication: HER2 positive breast cancer
     Dosage: DOSE OF LAST STUDY DRUG ADMINISTRATION PRIOR TO AE AND SAE WAS 497.5 MG.?ON 03/NOV/2022, RECEIVED MO
     Route: 042
     Dates: start: 20220902
  4. TWYNSTA [Concomitant]
     Active Substance: AMLODIPINE BESYLATE\TELMISARTAN
     Indication: Hypertension
     Dosage: 1 TABLET
     Route: 048
     Dates: start: 20220818
  5. ULTRACET [Concomitant]
     Active Substance: ACETAMINOPHEN\TRAMADOL HYDROCHLORIDE
     Indication: Myalgia
     Route: 048
     Dates: start: 20220905
  6. OLANZAPINE [Concomitant]
     Active Substance: OLANZAPINE
     Indication: Nausea
     Route: 048
     Dates: start: 20221013
  7. METOCLOPRAMIDE [Concomitant]
     Active Substance: METOCLOPRAMIDE
     Indication: Nausea
     Route: 048
     Dates: start: 20220924
  8. NORZYME [Concomitant]
     Dosage: 1 CAPSULE
     Route: 048
     Dates: start: 20220924
  9. DEXAMETHASONE [Concomitant]
     Active Substance: DEXAMETHASONE
     Route: 048
     Dates: start: 20221012, end: 20221012
  10. DEXAMETHASONE [Concomitant]
     Active Substance: DEXAMETHASONE
     Route: 048
     Dates: start: 20221013, end: 20221013
  11. DEXAMETHASONE [Concomitant]
     Active Substance: DEXAMETHASONE
     Route: 048
     Dates: start: 20221102, end: 20221102
  12. DEXAMETHASONE [Concomitant]
     Active Substance: DEXAMETHASONE
     Route: 048
     Dates: start: 20221103, end: 20221103
  13. HYDROCORTISONE [Concomitant]
     Active Substance: HYDROCORTISONE
     Route: 042
     Dates: start: 20221103, end: 20221103
  14. HYDROCORTISONE [Concomitant]
     Active Substance: HYDROCORTISONE
     Route: 042
     Dates: start: 20221013, end: 20221013
  15. CHLORPHENIRAMINE [Concomitant]
     Active Substance: CHLORPHENIRAMINE
     Route: 042
     Dates: start: 20221103, end: 20221103
  16. CHLORPHENIRAMINE [Concomitant]
     Active Substance: CHLORPHENIRAMINE
     Route: 042
     Dates: start: 20221013, end: 20221013
  17. ACETAMINOPHEN [Concomitant]
     Active Substance: ACETAMINOPHEN
     Route: 048
     Dates: start: 20221013, end: 20221013
  18. ACETAMINOPHEN [Concomitant]
     Active Substance: ACETAMINOPHEN
     Route: 048
     Dates: start: 20221103, end: 20221103
  19. AKYNZEO CAP. [Concomitant]
     Route: 048
     Dates: start: 20221103, end: 20221103
  20. AKYNZEO CAP. [Concomitant]
     Route: 048
     Dates: start: 20221013, end: 20221013

REACTIONS (1)
  - Syncope [Recovered/Resolved]

NARRATIVE: CASE EVENT DATE: 20221107
